FAERS Safety Report 24136291 (Version 1)
Quarter: 2024Q3

REPORT INFORMATION
  Report Type: Report from Study
  Country: KW (occurrence: KW)
  Receive Date: 20240725
  Receipt Date: 20240725
  Transmission Date: 20241017
  Serious: Yes (Hospitalization)
  Sender: BIOVITRUM
  Company Number: KW-AstraZeneca-2023A006883

PATIENT
  Age: 47 Day
  Sex: Female

DRUGS (1)
  1. SYNAGIS [Suspect]
     Active Substance: PALIVIZUMAB
     Indication: Antiviral prophylaxis
     Dosage: 15 MG/KG, ONCE EVERY 4 WEEKS
     Route: 030
     Dates: start: 20221206

REACTIONS (4)
  - Rhinorrhoea [Unknown]
  - Tonsillitis [Unknown]
  - Cough [Unknown]
  - Pyrexia [Unknown]

NARRATIVE: CASE EVENT DATE: 20230110
